FAERS Safety Report 9383636 (Version 2)
Quarter: 2013Q3

REPORT INFORMATION
  Report Type: Spontaneous
  Country: US (occurrence: US)
  Receive Date: 20130704
  Receipt Date: 20130819
  Transmission Date: 20140515
  Serious: No
  Sender: FDA-Public Use
  Company Number: US-B.I. PHARMACEUTICALS,INC./RIDGEFIELD-2013-BI-18903BP

PATIENT
  Sex: 0

DRUGS (1)
  1. COMBIVENT [Suspect]
     Dosage: 4 PUF

REACTIONS (2)
  - Drug administration error [Unknown]
  - Product quality issue [Unknown]
